FAERS Safety Report 7035185-4 (Version None)
Quarter: 2010Q4

REPORT INFORMATION
  Report Type: 
  Country: None (occurrence: None)
  Receive Date: 20101008
  Receipt Date: 20100813
  Transmission Date: 20110411
  Serious: No
  Sender: FDA-Public Use
  Company Number: US-BAYER-201031406NA

PATIENT
  Age: 43 Year
  Sex: Female
  Weight: 52 kg

DRUGS (1)
  1. ULTRAVIST 150 [Suspect]
     Indication: NECK PAIN
     Dosage: AS USED: 90 ML  UNIT DOSE: 200 ML
     Route: 042
     Dates: start: 20100813, end: 20100813

REACTIONS (1)
  - ORAL PRURITUS [None]
